FAERS Safety Report 4627839-1 (Version None)
Quarter: 2005Q2

REPORT INFORMATION
  Report Type: 
  Country: None (occurrence: None)
  Receive Date: 20050401
  Receipt Date: 20030725
  Transmission Date: 20051028
  Serious: Yes (Hospitalization)
  Sender: FDA-Public Use
  Company Number: 5611

PATIENT
  Age: 58 Year
  Sex: Female

DRUGS (3)
  1. PAMIDRONATE DISODIUM [Suspect]
     Dosage: 90 MG MONTHLY IV
     Route: 042
     Dates: start: 20030101, end: 20030601
  2. CELECOXIB [Suspect]
     Dosage: PO
     Route: 048
     Dates: start: 20021101
  3. TRAMADOL HCL [Suspect]
     Dosage: PO
     Route: 048
     Dates: start: 20020101

REACTIONS (1)
  - GRAND MAL CONVULSION [None]
